FAERS Safety Report 20774680 (Version 1)
Quarter: 2022Q2

REPORT INFORMATION
  Report Type: Spontaneous
  Country: US (occurrence: US)
  Receive Date: 20220502
  Receipt Date: 20220502
  Transmission Date: 20220721
  Serious: No
  Sender: FDA-Public Use
  Company Number: US-ABBVIE-21K-163-4198947-00

PATIENT
  Age: 70 Year
  Sex: Female
  Weight: 47.670 kg

DRUGS (18)
  1. CREON [Suspect]
     Active Substance: PANCRELIPASE AMYLASE\PANCRELIPASE LIPASE\PANCRELIPASE PROTEASE
     Indication: Pancreatic failure
     Dosage: 2 CAPSULES 3X WITH MEALS??1 CAPSULES WITH SNACKS
     Route: 048
     Dates: start: 20211210
  2. COVID-19 VACCINE [Concomitant]
     Indication: COVID-19 immunisation
     Dosage: MANUFACTURER: PFIZER
     Route: 030
     Dates: start: 20211210, end: 20211210
  3. COVID-19 VACCINE [Concomitant]
     Dosage: MANUFACTURER: PFIZER
     Route: 030
     Dates: start: 20210325, end: 20210325
  4. COVID-19 VACCINE [Concomitant]
     Dosage: MANUFACTURER: PFIZER
     Route: 030
     Dates: start: 20210304, end: 20210304
  5. SYNTHROID [Concomitant]
     Active Substance: LEVOTHYROXINE SODIUM
     Indication: Hypothyroidism
  6. POTASSIUM [Concomitant]
     Active Substance: POTASSIUM
     Indication: Seizure
  7. POTASSIUM [Concomitant]
     Active Substance: POTASSIUM
     Indication: Epilepsy
  8. ONDANSETRON [Concomitant]
     Active Substance: ONDANSETRON
     Indication: Epilepsy
  9. OMEPRAZOLE [Concomitant]
     Active Substance: OMEPRAZOLE
     Indication: Gastrooesophageal reflux disease
  10. RELPAX [Concomitant]
     Active Substance: ELETRIPTAN HYDROBROMIDE
     Indication: Migraine
  11. MIDAZOLAM [Concomitant]
     Active Substance: MIDAZOLAM
     Indication: Product used for unknown indication
  12. ESCITALOPRAM [Concomitant]
     Active Substance: ESCITALOPRAM OXALATE
     Indication: Epilepsy
  13. VITAMIN D [Concomitant]
     Active Substance: VITAMIN D NOS
     Indication: Product used for unknown indication
  14. VITAMIN B6 [Concomitant]
     Active Substance: PYRIDOXINE HYDROCHLORIDE
     Indication: Supplementation therapy
  15. VITAMIN B6 [Concomitant]
     Active Substance: PYRIDOXINE HYDROCHLORIDE
     Indication: Supplementation therapy
  16. CALCIUM [Concomitant]
     Active Substance: CALCIUM
     Indication: Supplementation therapy
  17. TYLENOL [Concomitant]
     Active Substance: ACETAMINOPHEN
     Indication: Product used for unknown indication
  18. CORTISONE [Concomitant]
     Active Substance: CORTISONE
     Indication: Rash pruritic

REACTIONS (1)
  - Rash erythematous [Recovering/Resolving]

NARRATIVE: CASE EVENT DATE: 20211211
